FAERS Safety Report 8961185 (Version 1)
Quarter: 2012Q4

REPORT INFORMATION
  Report Type: 
  Country: None (occurrence: US)
  Receive Date: 20121213
  Receipt Date: 20121213
  Transmission Date: 20130627
  Serious: No
  Sender: FDA-Public Use
  Company Number: US-ALLERGAN-1212739US

PATIENT
  Age: 75 Year
  Sex: Male

DRUGS (1)
  1. LUMIGAN� 0.01% [Suspect]
     Indication: INTRAOCULAR PRESSURE
     Dosage: 1 Gtt, UNK
     Route: 047

REACTIONS (4)
  - Inappropriate schedule of drug administration [Unknown]
  - Trichorrhexis [Unknown]
  - Foreign body sensation in eyes [Unknown]
  - Eye irritation [Unknown]
